FAERS Safety Report 5285427-0 (Version None)
Quarter: 2007Q2

REPORT INFORMATION
  Report Type: 
  Country: None (occurrence: None)
  Receive Date: 20070403
  Receipt Date: 20070326
  Transmission Date: 20071010
  Serious: Yes (Hospitalization)
  Sender: FDA-Public Use
  Company Number: CA-GILEAD-2007-0011775

PATIENT
  Sex: Male
  Weight: 82 kg

DRUGS (15)
  1. VIREAD [Suspect]
     Indication: HIV INFECTION
     Dates: end: 20070212
  2. TMC114 [Suspect]
     Indication: HIV INFECTION
     Route: 048
     Dates: start: 20070103
  3. RITONAVIR [Suspect]
     Indication: HIV INFECTION
     Route: 048
     Dates: end: 20070212
  4. FUZEON [Concomitant]
     Route: 058
  5. ZIAGEN [Concomitant]
     Indication: HIV INFECTION
  6. METFORMIN HCL [Concomitant]
     Indication: DIABETES MELLITUS
  7. SYNTHROID [Concomitant]
  8. AVANDIA [Concomitant]
  9. QUININE [Concomitant]
  10. FOLIC ACID [Concomitant]
  11. SEPTRA [Concomitant]
  12. FENOFIBRATE [Concomitant]
  13. TRAZODONE HCL [Concomitant]
  14. IMOVAN [Concomitant]
  15. LIPITOR [Concomitant]

REACTIONS (2)
  - HYPERKALAEMIA [None]
  - RENAL FAILURE ACUTE [None]
